FAERS Safety Report 22751168 (Version 2)
Quarter: 2023Q4

REPORT INFORMATION
  Report Type: Spontaneous
  Country: US (occurrence: US)
  Receive Date: 20230726
  Receipt Date: 20231006
  Transmission Date: 20240110
  Serious: No
  Sender: FDA-Public Use
  Company Number: US-SA-SAC20230725001358

PATIENT
  Age: 67 Year
  Sex: Male
  Weight: 114 kg

DRUGS (1)
  1. JEVTANA [Suspect]
     Active Substance: CABAZITAXEL
     Indication: Bladder cancer recurrent
     Dosage: 60MG/1.5ML KIT; QW
     Route: 043
     Dates: start: 20211014

REACTIONS (2)
  - Weight decreased [Unknown]
  - Incorrect route of product administration [Unknown]
